FAERS Safety Report 6056505-3 (Version None)
Quarter: 2009Q1

REPORT INFORMATION
  Report Type: 
  Country: None (occurrence: None)
  Receive Date: 20090126
  Receipt Date: 20090126
  Transmission Date: 20090719
  Serious: Yes (Life-Threatening)
  Sender: FDA-Public Use
  Company Number: None

PATIENT
  Age: 68 Year
  Sex: Male
  Weight: 240 kg

DRUGS (2)
  1. LEVAQUIN [Suspect]
     Indication: PNEUMONIA
     Dosage: 750
     Dates: start: 20081220
  2. LEVAQUIN [Suspect]
     Indication: PNEUMONIA
     Dosage: 500
     Dates: start: 20090105

REACTIONS (3)
  - MUSCLE DISORDER [None]
  - MUSCLE STRAIN [None]
  - RENAL FAILURE ACUTE [None]
